FAERS Safety Report 4841111-6 (Version None)
Quarter: 2005Q4

REPORT INFORMATION
  Report Type: 
  Country: None (occurrence: None)
  Receive Date: 20051130
  Receipt Date: 20051003
  Transmission Date: 20060501
  Serious: No
  Sender: FDA-Public Use
  Company Number: US-BRISTOL-MYERS SQUIBB COMPANY-13130661

PATIENT
  Age: 18 Year
  Sex: Female
  Weight: 86 kg

DRUGS (7)
  1. ABILIFY [Suspect]
     Indication: BIPOLAR DISORDER
     Route: 048
  2. ABILIFY [Suspect]
     Indication: ATTENTION DEFICIT/HYPERACTIVITY DISORDER
     Route: 048
  3. LAMICTAL [Concomitant]
  4. LITHIUM [Concomitant]
  5. ADDERALL XR 10 [Concomitant]
  6. ADDERALL 10 [Concomitant]
  7. CONTRACEPTIVE [Concomitant]

REACTIONS (3)
  - HYPERHIDROSIS [None]
  - SINUSITIS [None]
  - TREMOR [None]
